FAERS Safety Report 7894305-X (Version None)
Quarter: 2011Q4

REPORT INFORMATION
  Report Type: 
  Country: None (occurrence: None)
  Receive Date: 20111104
  Receipt Date: 20111028
  Transmission Date: 20120403
  Serious: Yes (Other)
  Sender: FDA-Public Use
  Company Number: AU-ABBOTT-11P-008-0870500-00

PATIENT
  Age: 50 Year
  Sex: Male

DRUGS (10)
  1. ZOLPIDEM [Interacting]
  2. CIPRO [Interacting]
  3. FLUOXETINE HCL [Interacting]
  4. DIAZEPAM [Concomitant]
  5. ZOPICLONE [Concomitant]
  6. VALPROATE SODIUM [Suspect]
     Indication: PRODUCT USED FOR UNKNOWN INDICATION
  7. VENLAFAXINE [Interacting]
  8. VITAMIN WITH SEROTONIN [Interacting]
  9. AMITRIPTYLINE HCL [Interacting]
  10. METOCLOPRAMIDE [Concomitant]

REACTIONS (4)
  - SEROTONIN SYNDROME [None]
  - DRUG INTERACTION [None]
  - HOMICIDE [None]
  - SOMNAMBULISM [None]
